FAERS Safety Report 7281762-5 (Version None)
Quarter: 2011Q1

REPORT INFORMATION
  Report Type: 
  Country: None (occurrence: None)
  Receive Date: 20110208
  Receipt Date: 20100527
  Transmission Date: 20110831
  Serious: Yes (Death, Hospitalization)
  Sender: FDA-Public Use
  Company Number: US-PFIZER INC-2010067407

PATIENT
  Sex: Male

DRUGS (1)
  1. SUTENT [Suspect]
     Indication: METASTATIC RENAL CELL CARCINOMA

REACTIONS (5)
  - METASTATIC RENAL CELL CARCINOMA [None]
  - NEUTROPHIL COUNT DECREASED [None]
  - DISEASE PROGRESSION [None]
  - PLATELET COUNT DECREASED [None]
  - LUNG INFECTION [None]
